FAERS Safety Report 20997678 (Version 1)
Quarter: 2022Q2

REPORT INFORMATION
  Report Type: Spontaneous
  Country: US (occurrence: US)
  Receive Date: 20220623
  Receipt Date: 20220623
  Transmission Date: 20220720
  Serious: No
  Sender: FDA-Public Use
  Company Number: US-JNJFOC-20220638577

PATIENT
  Sex: Male

DRUGS (1)
  1. TYLENOL 8 HR ARTHRITIS PAIN [Suspect]
     Active Substance: ACETAMINOPHEN
     Indication: Product used for unknown indication
     Dosage: AT LEAST SIX A DAY AND MOST OF THE DAYS HE/SHE TOOK NINE OF THEM
     Route: 065

REACTIONS (1)
  - Intentional overdose [Unknown]
